FAERS Safety Report 5675437-3 (Version None)
Quarter: 2008Q1

REPORT INFORMATION
  Report Type: 
  Country: None (occurrence: None)
  Receive Date: 20080321
  Receipt Date: 20080317
  Transmission Date: 20080703
  Serious: Yes (Other)
  Sender: FDA-Public Use
  Company Number: PHHY2008AU03309

PATIENT
  Sex: Female

DRUGS (2)
  1. ESTRADOT [Suspect]
     Dosage: 50 MCG
  2. METOPROLOL TARTRATE [Concomitant]

REACTIONS (3)
  - CARDIAC FIBRILLATION [None]
  - HOT FLUSH [None]
  - NAUSEA [None]
